FAERS Safety Report 9563034 (Version 1)
Quarter: 2013Q3

REPORT INFORMATION
  Report Type: Spontaneous
  Country: US (occurrence: US)
  Receive Date: 20130927
  Receipt Date: 20130927
  Transmission Date: 20140515
  Serious: Yes (Death, Congenital Anomaly)
  Sender: FDA-Public Use
  Company Number: US-FRI-1000049050

PATIENT
  Age: 0 Day
  Sex: Male

DRUGS (1)
  1. LEXAPRO [Suspect]
     Route: 064

REACTIONS (5)
  - Pulmonary hypertension [Fatal]
  - Atrioventricular septal defect [Fatal]
  - Hypoplastic left heart syndrome [Fatal]
  - Pulmonary vein stenosis [Fatal]
  - Ventricular septal defect [Fatal]
